FAERS Safety Report 10524317 (Version 1)
Quarter: 2014Q4

REPORT INFORMATION
  Report Type: Spontaneous
  Country: ES (occurrence: ES)
  Receive Date: 20141017
  Receipt Date: 20141017
  Transmission Date: 20150528
  Serious: Yes (Other)
  Sender: FDA-Public Use
  Company Number: ES-AMGEN-ESPSP2014079594

PATIENT
  Age: 36 Year
  Sex: Female

DRUGS (3)
  1. VECTIBIX [Suspect]
     Active Substance: PANITUMUMAB
     Indication: COLON CANCER METASTATIC
     Dosage: 6 MG/1 DOSE, ONCE IN 2 WEEKS
     Route: 042
     Dates: start: 20140726
  2. OXALIPLATIN. [Concomitant]
     Active Substance: OXALIPLATIN
     Indication: COLON CANCER METASTATIC
     Dosage: 165 MG/1 DOSE, ONCE IN 2 WEEKS
     Route: 042
     Dates: start: 20140726
  3. FLUOROURACIL. [Concomitant]
     Active Substance: FLUOROURACIL
     Indication: COLON CANCER METASTATIC
     Dosage: UNK UNK, ONCE IN 2 WEEKS
     Route: 042
     Dates: start: 20140726

REACTIONS (3)
  - Nocardiosis [Not Recovered/Not Resolved]
  - Catheter site infection [Not Recovered/Not Resolved]
  - Pyrexia [Recovered/Resolved]

NARRATIVE: CASE EVENT DATE: 20140726
